FAERS Safety Report 20818155 (Version 1)
Quarter: 2022Q2

REPORT INFORMATION
  Report Type: Report from Study
  Country: BR (occurrence: BR)
  Receive Date: 20220512
  Receipt Date: 20220512
  Transmission Date: 20220720
  Serious: Yes (Hospitalization)
  Sender: FDA-Public Use
  Company Number: BR-ELI_LILLY_AND_COMPANY-BR202202009369

PATIENT
  Sex: Female

DRUGS (2)
  1. ABEMACICLIB [Suspect]
     Active Substance: ABEMACICLIB
     Indication: Breast cancer
     Dosage: 150 MG, BID
     Route: 048
     Dates: start: 20220126
  2. ABEMACICLIB [Suspect]
     Active Substance: ABEMACICLIB
     Dosage: 150 MG, DAILY
     Route: 065

REACTIONS (12)
  - Dehydration [Unknown]
  - Diarrhoea [Unknown]
  - Feeling abnormal [Unknown]
  - Confusional state [Unknown]
  - Joint injury [Unknown]
  - Malaise [Unknown]
  - Feeding disorder [Unknown]
  - Exercise tolerance decreased [Unknown]
  - Muscular weakness [Unknown]
  - Sciatica [Not Recovered/Not Resolved]
  - Asthenia [Unknown]
  - Dry mouth [Unknown]
